FAERS Safety Report 11510397 (Version 4)
Quarter: 2015Q4

REPORT INFORMATION
  Report Type: Spontaneous
  Country: US (occurrence: US)
  Receive Date: 20150915
  Receipt Date: 20151111
  Transmission Date: 20160304
  Serious: Yes (Death, Hospitalization, Other)
  Sender: FDA-Public Use
  Company Number: US-AMGEN-USASP2015094308

PATIENT
  Age: 85 Year
  Sex: Female
  Weight: 91.16 kg

DRUGS (12)
  1. IRON [Concomitant]
     Active Substance: IRON
     Dosage: 325 MG, BID
     Route: 048
  2. OMEPRAZOLE. [Concomitant]
     Active Substance: OMEPRAZOLE
     Dosage: 20 MG, BID
     Route: 048
  3. LASIX [Concomitant]
     Active Substance: FUROSEMIDE
     Dosage: 40 MG, 2 TABLETS FOR 2 TIMES IN A DAY UNK
  4. REQUIP [Concomitant]
     Active Substance: ROPINIROLE HYDROCHLORIDE
     Dosage: 1 MG, 1-3 HOURS BEFORE BEDTIME QHS
     Route: 048
  5. POTASSIUM CHLORIDE. [Concomitant]
     Active Substance: POTASSIUM CHLORIDE
     Dosage: 10 MEQ, BID WITH FOOD
     Route: 048
  6. MULTIVITAMIN                       /00097801/ [Concomitant]
     Active Substance: VITAMINS
     Dosage: UNK, QD
     Route: 048
  7. LOSARTAN. [Concomitant]
     Active Substance: LOSARTAN
     Dosage: 100 MG, QD
     Route: 048
  8. PREDNISONE. [Concomitant]
     Active Substance: PREDNISONE
     Dosage: 20 MG, QD
     Route: 048
  9. TRAMADOL. [Concomitant]
     Active Substance: TRAMADOL
     Dosage: 50 MG, EVERY 6 HOURS AS NEEDED UNK
     Route: 048
  10. PROLIA [Suspect]
     Active Substance: DENOSUMAB
     Indication: PRODUCT USED FOR UNKNOWN INDICATION
     Dosage: 60 MG/ML, Q6MO
     Route: 058
     Dates: start: 201406
  11. CRESTOR [Concomitant]
     Active Substance: ROSUVASTATIN CALCIUM
     Dosage: 10 MG, 0.5 TABLET EVERY OTHER DAY UNK
     Route: 048
  12. SYNTHROID [Concomitant]
     Active Substance: LEVOTHYROXINE SODIUM
     Dosage: 50 MUG, QD
     Route: 048

REACTIONS (12)
  - Haemorrhoids [Unknown]
  - Cough [Unknown]
  - Pneumonia [Unknown]
  - Pain [Unknown]
  - Dehydration [Recovering/Resolving]
  - Leukocytosis [Unknown]
  - Atrial fibrillation [Unknown]
  - Hiatus hernia [Unknown]
  - Nausea [Unknown]
  - Localised intraabdominal fluid collection [Unknown]
  - Gastrointestinal haemorrhage [Fatal]
  - Lipase abnormal [Unknown]

NARRATIVE: CASE EVENT DATE: 20150720
